FAERS Safety Report 4915755-7 (Version None)
Quarter: 2006Q1

REPORT INFORMATION
  Report Type: 
  Country: None (occurrence: None)
  Receive Date: 20060217
  Receipt Date: 20060203
  Transmission Date: 20060701
  Serious: Yes (Death)
  Sender: FDA-Public Use
  Company Number: FR-JNJFOC-20060204098

PATIENT
  Sex: Female

DRUGS (3)
  1. TRAMADOL HCL [Suspect]
     Indication: PARAESTHESIA
     Route: 048
  2. OXAZEPAM [Concomitant]
     Indication: PARAESTHESIA
     Route: 048
  3. NORDAZEPAM [Concomitant]
     Indication: ANXIETY
     Route: 048

REACTIONS (2)
  - DEATH [None]
  - INTENTIONAL OVERDOSE [None]
